FAERS Safety Report 6729804-7 (Version None)
Quarter: 2010Q2

REPORT INFORMATION
  Report Type: 
  Country: None (occurrence: None)
  Receive Date: 20100518
  Receipt Date: 20100511
  Transmission Date: 20101027
  Serious: Yes (Other)
  Sender: FDA-Public Use
  Company Number: JP-PFIZER INC-2010060173

PATIENT
  Age: 47 Year
  Sex: Male

DRUGS (2)
  1. ATARAX [Suspect]
     Dosage: 25 MG, DAILY
     Route: 030
     Dates: start: 20100201
  2. SOSEGON [Concomitant]
     Route: 030
     Dates: start: 20100201

REACTIONS (1)
  - SKIN NECROSIS [None]
